FAERS Safety Report 8403497-5 (Version None)
Quarter: 2012Q2

REPORT INFORMATION
  Report Type: 
  Country: None (occurrence: None)
  Receive Date: 20120601
  Receipt Date: 20120529
  Transmission Date: 20120825
  Serious: Yes (Hospitalization)
  Sender: FDA-Public Use
  Company Number: PHHY2012MX046300

PATIENT
  Sex: Female

DRUGS (6)
  1. KARET [Concomitant]
     Indication: THYROID DISORDER
     Dosage: UNK UKN, QD
  2. DIOVAN [Suspect]
     Indication: HYPERTENSION
     Dosage: 1 TABLET (320 MG) PER DAY
  3. SOTOPER [Concomitant]
     Dosage: UNK UKN, QD
  4. INHIBITRON [Concomitant]
     Indication: GASTRITIS
     Dosage: UNK UKN, QD
  5. TENORETIC 100 [Concomitant]
     Indication: HYPERTENSION
     Dosage: UNK UKN, QD
  6. MODURETIC 5-50 [Concomitant]
     Indication: DIURETIC THERAPY
     Dosage: UNK UKN, QD

REACTIONS (4)
  - FEELING ABNORMAL [None]
  - ABDOMINAL DISCOMFORT [None]
  - ADENOMA BENIGN [None]
  - HYPERTENSION [None]
